FAERS Safety Report 20119569 (Version 2)
Quarter: 2021Q4

REPORT INFORMATION
  Report Type: Spontaneous
  Country: US (occurrence: US)
  Receive Date: 20211126
  Receipt Date: 20211222
  Transmission Date: 20220304
  Serious: Yes (Other)
  Sender: FDA-Public Use
  Company Number: US-ALKERMES INC.-ALK-2021-006135

PATIENT
  Sex: Male

DRUGS (3)
  1. VIVITROL [Suspect]
     Active Substance: NALTREXONE
     Indication: Alcoholism
     Dosage: 380 MILLIGRAM, QMO
     Route: 030
     Dates: start: 202104
  2. VIVITROL [Suspect]
     Active Substance: NALTREXONE
     Indication: Drug dependence
  3. TRAMADOL [Concomitant]
     Active Substance: TRAMADOL
     Indication: Abdominal operation
     Dosage: UNK
     Route: 065
     Dates: start: 2021

REACTIONS (1)
  - Abdominal operation [Recovered/Resolved]

NARRATIVE: CASE EVENT DATE: 20210101
